FAERS Safety Report 6251451-4 (Version None)
Quarter: 2009Q2

REPORT INFORMATION
  Report Type: 
  Country: None (occurrence: None)
  Receive Date: 20090630
  Receipt Date: 20090622
  Transmission Date: 20091009
  Serious: No
  Sender: FDA-Public Use
  Company Number: US-JNJFOC-20090608273

PATIENT
  Sex: Female
  Weight: 81.65 kg

DRUGS (2)
  1. DURAGESIC-100 [Suspect]
     Indication: FIBROMYALGIA
     Route: 062
  2. UNKNOWN MEDICATION [Concomitant]

REACTIONS (2)
  - BACK PAIN [None]
  - WRONG TECHNIQUE IN DRUG USAGE PROCESS [None]
